FAERS Safety Report 10073927 (Version 2)
Quarter: 2014Q2

REPORT INFORMATION
  Report Type: Report from Study
  Country: US (occurrence: US)
  Receive Date: 20140411
  Receipt Date: 20140411
  Transmission Date: 20141212
  Serious: Yes (Hospitalization)
  Sender: FDA-Public Use
  Company Number: US-ABBVIE-14P-163-1214460-00

PATIENT
  Age: 61 Year
  Sex: Female

DRUGS (6)
  1. HUMIRA [Suspect]
     Indication: RHEUMATOID ARTHRITIS
     Dates: start: 20140205, end: 20140312
  2. FENTANYL [Concomitant]
     Indication: PRODUCT USED FOR UNKNOWN INDICATION
     Dosage: PATIENT CHANGES IT EVERY 5 DAYS INSTEAD OF 3
     Route: 061
  3. SYNTHROID [Concomitant]
     Indication: THYROID DISORDER
     Route: 048
  4. PROTONIX [Concomitant]
     Indication: RHEUMATOID ARTHRITIS
     Route: 048
  5. HYZAAR [Concomitant]
     Indication: HYPERTENSION
     Dosage: 100 MG/25 MG
     Route: 048
  6. PREDNISONE [Concomitant]
     Indication: RHEUMATOID ARTHRITIS
     Route: 048

REACTIONS (13)
  - Cardiac disorder [Unknown]
  - Cardiac fibrillation [Unknown]
  - Dyspnoea [Recovered/Resolved]
  - Dyspnoea [Unknown]
  - Asthenia [Unknown]
  - Chest discomfort [Recovered/Resolved]
  - Oedema peripheral [Unknown]
  - Joint swelling [Unknown]
  - Dyspnoea [Recovered/Resolved]
  - Heart rate increased [Unknown]
  - Cardiac disorder [Not Recovered/Not Resolved]
  - Device issue [Unknown]
  - Pain of skin [Unknown]
